FAERS Safety Report 12538194 (Version 1)
Quarter: 2016Q3

REPORT INFORMATION
  Report Type: Spontaneous
  Country: US (occurrence: US)
  Receive Date: 20160707
  Receipt Date: 20160707
  Transmission Date: 20161109
  Serious: Yes (Other)
  Sender: FDA-Public Use
  Company Number: US-TEVA-673294USA

PATIENT
  Sex: Female

DRUGS (1)
  1. ZECUITY [Suspect]
     Active Substance: SUMATRIPTAN SUCCINATE
     Route: 062

REACTIONS (12)
  - Incorrect drug administration duration [Unknown]
  - Sunburn [Recovered/Resolved]
  - Application site inflammation [Recovered/Resolved]
  - Application site urticaria [Recovered/Resolved]
  - Product adhesion issue [Unknown]
  - Application site pruritus [Unknown]
  - Application site erythema [Recovered/Resolved]
  - Application site eczema [Not Recovered/Not Resolved]
  - Wrong technique in product usage process [Unknown]
  - Application site pain [Recovered/Resolved]
  - Rash generalised [Recovered/Resolved]
  - Dry skin [Not Recovered/Not Resolved]
